FAERS Safety Report 6259967-1 (Version None)
Quarter: 2009Q3

REPORT INFORMATION
  Report Type: 
  Country: None (occurrence: None)
  Receive Date: 20090706
  Receipt Date: 20090619
  Transmission Date: 20100115
  Serious: Yes (Other)
  Sender: FDA-Public Use
  Company Number: CHNY2009JP02515

PATIENT
  Age: 66 Year
  Sex: Female

DRUGS (1)
  1. NICOTINELL TTS      (NICOTINE) TRANS-THERAPEUTIC-SYSTEM [Suspect]
     Indication: SMOKING CESSATION THERAPY
     Dosage: 14 MG, QD, TRANSDERMAL
     Route: 062
     Dates: start: 20090611, end: 20090613

REACTIONS (1)
  - HYPOAESTHESIA [None]
